FAERS Safety Report 9908980 (Version 1)
Quarter: 2014Q1

REPORT INFORMATION
  Report Type: Spontaneous
  Country: SE (occurrence: None)
  Receive Date: 20140212
  Receipt Date: 20140212
  Transmission Date: 20141002
  Serious: Yes (Death)
  Sender: FDA-Public Use
  Company Number: 2014P1001023

PATIENT
  Age: 57 Year
  Sex: Male

DRUGS (4)
  1. ALPRAZOLAM [Suspect]
  2. DEXTROPROPOXYPHENE [Suspect]
  3. VENLAFAXINE [Suspect]
  4. ETHANOL [Suspect]

REACTIONS (2)
  - Toxicity to various agents [None]
  - Completed suicide [None]
